FAERS Safety Report 7033883-X (Version None)
Quarter: 2010Q4

REPORT INFORMATION
  Report Type: 
  Country: None (occurrence: None)
  Receive Date: 20101007
  Receipt Date: 20100930
  Transmission Date: 20110411
  Serious: Yes (Other)
  Sender: FDA-Public Use
  Company Number: US-AMGEN-KDL443107

PATIENT
  Sex: Female
  Weight: 62.7 kg

DRUGS (3)
  1. PROCRIT [Suspect]
     Indication: RENAL FAILURE CHRONIC
     Route: 058
     Dates: start: 20020101
  2. HYDRALAZINE HCL [Concomitant]
     Route: 048
  3. CARVEDILOL [Concomitant]
     Route: 048

REACTIONS (2)
  - ANGINA PECTORIS [None]
  - BLOOD PRESSURE INCREASED [None]
